FAERS Safety Report 26135442 (Version 1)
Quarter: 2025Q4

REPORT INFORMATION
  Report Type: Spontaneous
  Country: US (occurrence: US)
  Receive Date: 20251209
  Receipt Date: 20251209
  Transmission Date: 20260118
  Serious: No
  Sender: NOVEN
  Company Number: US-NOVEN PHARMACEUTICALS, INC.-2025-NOV-US001499

PATIENT
  Age: 51 Year
  Sex: Female
  Weight: 64.399 kg

DRUGS (1)
  1. ESTRADIOL [Suspect]
     Active Substance: ESTRADIOL
     Indication: Product used for unknown indication
     Dosage: UNK UNK, 1/WEEK (CHANGED ONCE A WEEK)
     Route: 062

REACTIONS (4)
  - Hot flush [Unknown]
  - Product ineffective [Unknown]
  - Intentional product use issue [Unknown]
  - Product adhesion issue [Unknown]
